FAERS Safety Report 18606622 (Version 1)
Quarter: 2020Q4

REPORT INFORMATION
  Report Type: Spontaneous
  Country: US (occurrence: US)
  Receive Date: 20201211
  Receipt Date: 20201211
  Transmission Date: 20210114
  Serious: Yes (Hospitalization)
  Sender: FDA-Public Use
  Company Number: US-MYLANLABS-2020M1101840

PATIENT
  Age: 26 Year
  Sex: Male

DRUGS (3)
  1. VALPROIC ACID. [Suspect]
     Active Substance: VALPROIC ACID
     Indication: MYOCLONUS
     Dosage: 1000 MILLIGRAM 20 MG/KG LOADING DOSE ADMINISTERED IN DAY 3
     Route: 042
  2. VALPROIC ACID. [Suspect]
     Active Substance: VALPROIC ACID
     Dosage: 500 MILLIGRAM, Q8H FOR FOUR DOSES
     Route: 042
  3. VALPROIC ACID. [Suspect]
     Active Substance: VALPROIC ACID
     Dosage: 500 MILLIGRAM UNTIL DAY 8
     Route: 042

REACTIONS (1)
  - Drug ineffective [Unknown]
